FAERS Safety Report 13895024 (Version 1)
Quarter: 2017Q3

REPORT INFORMATION
  Report Type: Report from Study
  Country: None (occurrence: US)
  Receive Date: 20170823
  Receipt Date: 20170823
  Transmission Date: 20171127
  Serious: No
  Sender: FDA-Public Use
  Company Number: US-SWEDISH ORPHAN INTERNATIONAL AB-2016US0794

PATIENT
  Sex: Female

DRUGS (1)
  1. KINERET [Suspect]
     Active Substance: ANAKINRA
     Indication: STILL^S DISEASE
     Route: 058
     Dates: start: 20160528

REACTIONS (6)
  - Visual impairment [Unknown]
  - Pruritus generalised [Unknown]
  - Abdominal symptom [Unknown]
  - Injection site mass [Unknown]
  - Injection site reaction [Unknown]
  - Contusion [Unknown]

NARRATIVE: CASE EVENT DATE: 2016
